FAERS Safety Report 14002505 (Version 2)
Quarter: 2018Q1

REPORT INFORMATION
  Report Type: Spontaneous
  Country: US (occurrence: US)
  Receive Date: 20170922
  Receipt Date: 20180117
  Transmission Date: 20180508
  Serious: No
  Sender: FDA-Public Use
  Company Number: US-JNJFOC-20170816458

PATIENT
  Sex: Male
  Weight: 83.92 kg

DRUGS (10)
  1. PREDNISONE. [Concomitant]
     Active Substance: PREDNISONE
     Indication: RHEUMATIC DISORDER
     Route: 065
     Dates: start: 201601
  2. PREDNISONE. [Concomitant]
     Active Substance: PREDNISONE
     Indication: RHEUMATIC DISORDER
     Route: 065
  3. ISOTONIX OPC-3 [Concomitant]
     Active Substance: HERBALS
     Indication: MACULAR DEGENERATION
     Route: 065
     Dates: start: 2014
  4. PREDNISONE. [Concomitant]
     Active Substance: PREDNISONE
     Indication: MYALGIA
     Route: 065
  5. FOSAMAX [Concomitant]
     Active Substance: ALENDRONATE SODIUM
     Indication: OSTEOPOROSIS
     Route: 065
     Dates: start: 201601
  6. PREDNISONE. [Concomitant]
     Active Substance: PREDNISONE
     Indication: MYALGIA
     Route: 065
     Dates: start: 201601
  7. VITAMIN D3 [Concomitant]
     Active Substance: CHOLECALCIFEROL
     Indication: ROUTINE HEALTH MAINTENANCE
     Route: 065
  8. CALCIUM CARBONATE. [Concomitant]
     Active Substance: CALCIUM CARBONATE
     Indication: ROUTINE HEALTH MAINTENANCE
     Route: 065
  9. XARELTO [Suspect]
     Active Substance: RIVAROXABAN
     Indication: DEEP VEIN THROMBOSIS
     Route: 048
     Dates: start: 201508
  10. OMEGA-3 FATTY ACIDS [Concomitant]
     Active Substance: OMEGA-3 FATTY ACIDS
     Indication: ROUTINE HEALTH MAINTENANCE
     Route: 065

REACTIONS (3)
  - Weight decreased [Not Recovered/Not Resolved]
  - Glycosylated haemoglobin increased [Unknown]
  - Neuropathy peripheral [Not Recovered/Not Resolved]

NARRATIVE: CASE EVENT DATE: 2017
